FAERS Safety Report 4848314-5 (Version None)
Quarter: 2005Q4

REPORT INFORMATION
  Report Type: 
  Country: None (occurrence: None)
  Receive Date: 20051206
  Receipt Date: 20051129
  Transmission Date: 20060501
  Serious: Yes (Other)
  Sender: FDA-Public Use
  Company Number: HQWYE204621MAR05

PATIENT
  Age: 52 Year
  Sex: Female

DRUGS (14)
  1. RAPAMUNE [Suspect]
     Indication: PROPHYLAXIS AGAINST TRANSPLANT REJECTION
     Dosage: 7 MG 1X PER 1 DAY
     Route: 048
     Dates: start: 20050119
  2. MYCOPHENOLATE MOFETIL (MYCOPHENOLATE MOFETIL, ) [Suspect]
     Dosage: SEE IMAGE
     Route: 048
     Dates: end: 20050315
  3. MYCOPHENOLATE MOFETIL (MYCOPHENOLATE MOFETIL, ) [Suspect]
     Dosage: SEE IMAGE
     Route: 048
     Dates: start: 20050316, end: 20050316
  4. MYCOPHENOLATE MOFETIL (MYCOPHENOLATE MOFETIL, ) [Suspect]
     Dosage: SEE IMAGE
     Route: 048
     Dates: start: 20050317, end: 20050317
  5. MYCOPHENOLATE MOFETIL (MYCOPHENOLATE MOFETIL, ) [Suspect]
     Dosage: SEE IMAGE
     Route: 048
     Dates: start: 20050318, end: 20050318
  6. MYCOPHENOLATE MOFETIL (MYCOPHENOLATE MOFETIL, ) [Suspect]
     Dosage: SEE IMAGE
     Route: 048
     Dates: start: 20050319
  7. PREDNISONE [Suspect]
     Dosage: 10 MG 1X PER 1 DAY
     Route: 048
  8. ATENOLOL [Concomitant]
  9. ALTACE [Concomitant]
  10. LIPITOR [Concomitant]
  11. SEPTRA [Concomitant]
  12. LOSEC (OMEPRAZOLE) [Concomitant]
  13. ATIVAN [Concomitant]
  14. HYDROCHLOROTHIAZIDE [Concomitant]

REACTIONS (6)
  - DIARRHOEA [None]
  - DRUG INEFFECTIVE [None]
  - GLOMERULOSCLEROSIS [None]
  - KIDNEY FIBROSIS [None]
  - KIDNEY TRANSPLANT REJECTION [None]
  - RENAL TUBULAR ATROPHY [None]
